FAERS Safety Report 20473539 (Version 1)
Quarter: 2022Q1

REPORT INFORMATION
  Report Type: Other
  Country: None (occurrence: US)
  Receive Date: 20220215
  Receipt Date: 20220215
  Transmission Date: 20220423
  Serious: Yes (Hospitalization)
  Sender: FDA-Public Use
  Company Number: US-OrBion Pharmaceuticals Private Limited-2125896

PATIENT
  Age: 39 Year
  Sex: Female

DRUGS (1)
  1. AMLODIPINE BESYLATE [Suspect]
     Active Substance: AMLODIPINE BESYLATE
     Route: 065

REACTIONS (15)
  - Intentional overdose [Recovered/Resolved]
  - Tachycardia [Unknown]
  - Chest pain [Unknown]
  - Tachypnoea [Recovered/Resolved]
  - Depression [Unknown]
  - Non-cardiogenic pulmonary oedema [Recovered/Resolved]
  - Hypoxia [Recovered/Resolved]
  - Hypotension [Unknown]
  - Oedema peripheral [Unknown]
  - Acute kidney injury [Unknown]
  - Leukocytosis [Unknown]
  - Electrocardiogram T wave abnormal [Unknown]
  - Hypervolaemia [Unknown]
  - Pulmonary alveolar haemorrhage [Recovered/Resolved]
  - Pneumonia aspiration [Recovered/Resolved]
